FAERS Safety Report 20030510 (Version 1)
Quarter: 2021Q4

REPORT INFORMATION
  Report Type: Spontaneous
  Country: US (occurrence: US)
  Receive Date: 20211103
  Receipt Date: 20211103
  Transmission Date: 20220303
  Serious: No
  Sender: FDA-Public Use
  Company Number: US-PFIZER INC-202101011968

PATIENT
  Age: 66 Year
  Sex: Female

DRUGS (1)
  1. BRAFTOVI [Suspect]
     Active Substance: ENCORAFENIB
     Indication: Ovarian cancer
     Dosage: 75 MG

REACTIONS (3)
  - Product dispensing error [Unknown]
  - Product label confusion [Unknown]
  - Off label use [Unknown]
